FAERS Safety Report 7504133-2 (Version None)
Quarter: 2011Q2

REPORT INFORMATION
  Report Type: 
  Country: None (occurrence: None)
  Receive Date: 20110401
  Receipt Date: 20110221
  Transmission Date: 20111010
  Serious: No
  Sender: FDA-Public Use
  Company Number: US-004772

PATIENT
  Age: 77 Year
  Sex: Male
  Weight: 67.586 kg

DRUGS (2)
  1. ATENOLOL [Concomitant]
  2. FIRMAGON [Suspect]
     Indication: PROSTATE CANCER
     Dosage: 240 MG 1X SUBCUTANEOUS
     Route: 058
     Dates: start: 20110216, end: 20110216

REACTIONS (1)
  - INJECTION SITE SWELLING [None]
